FAERS Safety Report 20411258 (Version 1)
Quarter: 2022Q1

REPORT INFORMATION
  Report Type: Spontaneous
  Country: CO (occurrence: CO)
  Receive Date: 20220201
  Receipt Date: 20220201
  Transmission Date: 20220423
  Serious: Yes (Life-Threatening)
  Sender: FDA-Public Use
  Company Number: CO-GUERBET-CO-20220001

PATIENT
  Sex: Female

DRUGS (1)
  1. OPTIRAY 350 [Suspect]
     Active Substance: IOVERSOL
     Indication: Computerised tomogram abdomen
     Route: 042
     Dates: start: 20220114, end: 20220114

REACTIONS (3)
  - Suffocation feeling [Unknown]
  - Lip swelling [Unknown]
  - Swelling [Unknown]

NARRATIVE: CASE EVENT DATE: 20220114
